FAERS Safety Report 10412217 (Version 1)
Quarter: 2014Q3

REPORT INFORMATION
  Report Type: Spontaneous
  Country: US (occurrence: US)
  Receive Date: 20140827
  Receipt Date: 20140827
  Transmission Date: 20150326
  Serious: Yes (Other)
  Sender: FDA-Public Use
  Company Number: US-AMGEN-USASP2014064322

PATIENT
  Age: 72 Year
  Sex: Female

DRUGS (2)
  1. PROLIA [Suspect]
     Active Substance: DENOSUMAB
     Indication: OSTEOPOROSIS POSTMENOPAUSAL
     Dosage: UNK UNK, Q6MO
     Route: 065
  2. MAXZIDE [Concomitant]
     Active Substance: HYDROCHLOROTHIAZIDE\TRIAMTERENE
     Indication: FLUID IMBALANCE
     Dosage: UNK UNK, AS NECESSARY
     Route: 065

REACTIONS (8)
  - Pain in extremity [Unknown]
  - Dyspepsia [Unknown]
  - Mobility decreased [Unknown]
  - Paraesthesia [Unknown]
  - Arthralgia [Unknown]
  - Foot fracture [Recovered/Resolved]
  - Muscular weakness [Not Recovered/Not Resolved]
  - Femur fracture [Recovered/Resolved]
